FAERS Safety Report 20057560 (Version 1)
Quarter: 2021Q4

REPORT INFORMATION
  Report Type: Spontaneous
  Country: LB (occurrence: LB)
  Receive Date: 20211111
  Receipt Date: 20211111
  Transmission Date: 20220303
  Serious: Yes (Death, Life-Threatening, Hospitalization, Other)
  Sender: FDA-Public Use
  Company Number: LB-AMGEN-LBNSP2021173099

PATIENT

DRUGS (12)
  1. FILGRASTIM [Suspect]
     Active Substance: FILGRASTIM
     Indication: Prophylaxis
     Dosage: UNK
     Route: 065
  2. DOXORUBICIN [Concomitant]
     Active Substance: DOXORUBICIN
     Indication: B-cell lymphoma
     Dosage: 75 MILLIGRAM/SQ. METER
  3. CYCLOPHOSPHAMIDE [Concomitant]
     Active Substance: CYCLOPHOSPHAMIDE
     Indication: B-cell lymphoma
     Dosage: 1200 MILLIGRAM/SQ. METER
     Route: 065
  4. VINCRISTINE [Concomitant]
     Active Substance: VINCRISTINE
     Indication: B-cell lymphoma
     Dosage: 2 MILLIGRAM
     Route: 065
  5. RITUXIMAB [Concomitant]
     Active Substance: RITUXIMAB
     Indication: B-cell lymphoma
     Dosage: 375 MILLIGRAM/SQ. METER
     Route: 065
  6. VINDESINE [Concomitant]
     Active Substance: VINDESINE
     Indication: B-cell lymphoma
  7. BLEOMYCIN [Concomitant]
     Active Substance: BLEOMYCIN SULFATE
  8. PREDNISONE [Concomitant]
     Active Substance: PREDNISONE
  9. METHOTREXATE [Concomitant]
     Active Substance: METHOTREXATE
     Indication: Prophylaxis
     Dosage: 300 MILLIGRAM/SQ. METER
  10. IFOSFAMIDE [Concomitant]
     Active Substance: IFOSFAMIDE
     Dosage: 1500 MILLIGRAM/SQ. METER
  11. ETOPOSIDE [Concomitant]
     Active Substance: ETOPOSIDE
     Dosage: 300 MILLIGRAM/SQ. METER
  12. CYTARABINE [Concomitant]
     Active Substance: CYTARABINE
     Dosage: 100 MILLIGRAM/SQ. METER
     Route: 058

REACTIONS (16)
  - Death [Fatal]
  - Diffuse large B-cell lymphoma [Unknown]
  - Febrile neutropenia [Fatal]
  - Cardiac dysfunction [Unknown]
  - Gastrointestinal tract irritation [Unknown]
  - Neutropenia [Unknown]
  - Neuropathy peripheral [Unknown]
  - Thrombosis [Unknown]
  - Pneumonia [Unknown]
  - Skin toxicity [Unknown]
  - Acute kidney injury [Unknown]
  - Transaminases increased [Unknown]
  - Mucosal inflammation [Unknown]
  - Thrombocytopenia [Unknown]
  - Headache [Unknown]
  - Anaemia [Unknown]
